FAERS Safety Report 6501768-0 (Version None)
Quarter: 2009Q4

REPORT INFORMATION
  Report Type: 
  Country: None (occurrence: None)
  Receive Date: 20091216
  Receipt Date: 20091207
  Transmission Date: 20100525
  Serious: Yes (Other)
  Sender: FDA-Public Use
  Company Number: US-PFIZER INC-2009305549

PATIENT
  Sex: Female
  Weight: 111 kg

DRUGS (16)
  1. CHANTIX [Suspect]
     Indication: SMOKING CESSATION THERAPY
     Route: 048
     Dates: start: 20090501, end: 20090701
  2. METHOTREXATE [Concomitant]
  3. LANOXIN [Concomitant]
  4. TRIAMTERENE AND HYDROCHLOROTHIAZIDE [Concomitant]
  5. FOLIC ACID [Concomitant]
  6. FUROSEMIDE [Concomitant]
  7. KLOR-CON [Concomitant]
  8. HYDROXYZINE [Concomitant]
  9. SIMVASTATIN [Concomitant]
  10. ESTROGENS CONJUGATED [Concomitant]
  11. PAROXETINE [Concomitant]
  12. AMBIEN [Concomitant]
  13. FISH OIL [Concomitant]
  14. VITAMIN D [Concomitant]
  15. ASCORBIC ACID [Concomitant]
  16. ACETYLSALICYLIC ACID [Concomitant]
     Indication: RHEUMATOID ARTHRITIS

REACTIONS (12)
  - ABNORMAL BEHAVIOUR [None]
  - ABNORMAL DREAMS [None]
  - BLOOD POTASSIUM DECREASED [None]
  - DEPRESSION [None]
  - DRY SKIN [None]
  - HYPOKINESIA [None]
  - IRRITABILITY [None]
  - PHARYNGEAL MASS [None]
  - PHARYNGEAL OEDEMA [None]
  - SKIN EXFOLIATION [None]
  - SKIN WRINKLING [None]
  - SUICIDAL IDEATION [None]
